FAERS Safety Report 5357584-9 (Version None)
Quarter: 2007Q2

REPORT INFORMATION
  Report Type: 
  Country: None (occurrence: None)
  Receive Date: 20070530
  Receipt Date: 20070125
  Transmission Date: 20071010
  Serious: Yes (Hospitalization)
  Sender: FDA-Public Use
  Company Number: USA040465068

PATIENT
  Age: 45 Year
  Sex: Male
  Weight: 74.8 kg

DRUGS (3)
  1. ZYPREXA [Suspect]
     Indication: DEPRESSION
     Dosage: 2.5 MG, 2/D
     Dates: start: 20000101
  2. PROZAC [Concomitant]
  3. EFFEXOR [Concomitant]

REACTIONS (4)
  - BIPOLAR DISORDER [None]
  - CHEST PAIN [None]
  - DIABETES MELLITUS [None]
  - HYPOAESTHESIA [None]
